FAERS Safety Report 7968023-3 (Version None)
Quarter: 2011Q4

REPORT INFORMATION
  Report Type: 
  Country: None (occurrence: None)
  Receive Date: 20111207
  Receipt Date: 20111121
  Transmission Date: 20120403
  Serious: Yes (Death)
  Sender: FDA-Public Use
  Company Number: 2011AP002783

PATIENT
  Age: 18 Year
  Sex: Female

DRUGS (9)
  1. METHOTREXATE [Concomitant]
  2. METHOTREXATE [Concomitant]
  3. PREGABALIN [Concomitant]
  4. METHYLPREDNISOLONE [Concomitant]
  5. MORPHINE [Concomitant]
  6. OMEPRAZOLE [Concomitant]
  7. ACETAMINOPHEN [Concomitant]
  8. LAMOTRIGINE [Suspect]
     Indication: MIGRAINE
     Dosage: 25 MG, PO, QD
     Route: 048
     Dates: start: 20101223
  9. NAPROXEN [Concomitant]

REACTIONS (11)
  - DRUG RASH WITH EOSINOPHILIA AND SYSTEMIC SYMPTOMS [None]
  - RASH [None]
  - DISSEMINATED INTRAVASCULAR COAGULATION [None]
  - PYREXIA [None]
  - FALL [None]
  - ARTHRALGIA [None]
  - SUDDEN DEATH [None]
  - BRAIN OEDEMA [None]
  - BALANCE DISORDER [None]
  - MULTI-ORGAN FAILURE [None]
  - GENERAL PHYSICAL HEALTH DETERIORATION [None]
